FAERS Safety Report 8178654 (Version 3)
Quarter: 2012Q4

REPORT INFORMATION
  Report Type: 
  Country: US (occurrence: US)
  Receive Date: 20111013
  Receipt Date: 20120925
  Transmission Date: 20130627
  Serious: Yes (Hospitalization)
  Sender: FDA-Public Use
  Company Number: US-BAYER-2011-095495

PATIENT
  Age: 43 Year
  Sex: Female
  Weight: 77.1 kg

DRUGS (14)
  1. YAZ [Suspect]
     Indication: PREMENSTRUAL SYNDROME
     Dosage: UNK
     Dates: start: 20090428, end: 20100717
  2. GIANVI [Suspect]
     Indication: PREMENSTRUAL SYNDROME
     Dosage: UNK
     Dates: start: 20100718, end: 20100903
  3. REMICADE [Concomitant]
     Indication: CROHN^S DISEASE
     Dosage: 8 vials every 4 weeks
     Dates: start: 2001
  4. METHOTREXATE [Concomitant]
     Indication: ARTHRALGIA
     Dosage: 15 mg, weekly
     Dates: start: 2007
  5. WELLBUTRIN XL [Concomitant]
     Indication: ASTHENIA
     Dosage: 150 mg, QD
     Dates: start: 2005
  6. XANAX [Concomitant]
     Indication: ANXIETY
     Dosage: 0.5 mg, BID and bedtime
     Dates: start: 2004
  7. EFFEXOR [Concomitant]
     Indication: DEPRESSION
     Dosage: 37.5 mg, QD
     Dates: start: 20100825
  8. RESTORIL [Concomitant]
     Indication: SLEEP DISORDER
     Dosage: 30 mg, QD
     Dates: start: 2008
  9. VALACICLOVIR [Concomitant]
     Dosage: 1 mg, QD
     Dates: start: 20100716
  10. LORTAB [HYDROCODONE BITARTRATE,PARACETAMOL] [Concomitant]
     Indication: PAIN
     Dosage: 7.5-500 every 4 hours prn
     Dates: start: 2003
  11. ZOLOFT [Concomitant]
     Dosage: 100 mg, QD
     Dates: start: 20100727
  12. TOPIRAMATE [Concomitant]
     Dosage: 25 mg, UNK
     Dates: start: 20100828
  13. KLOR-CON [Concomitant]
     Dosage: 20 mEq, QD
     Dates: start: 20100719
  14. PREDNISONE [Concomitant]
     Dosage: 30 mg, QD
     Dates: start: 20100825

REACTIONS (10)
  - Pulmonary embolism [None]
  - Deep vein thrombosis [None]
  - Quality of life decreased [None]
  - Fear of disease [None]
  - Injury [None]
  - Pain [None]
  - Emotional distress [None]
  - Anhedonia [None]
  - Fatigue [Recovering/Resolving]
  - Anxiety [None]
